FAERS Safety Report 16608032 (Version 1)
Quarter: 2019Q3

REPORT INFORMATION
  Report Type: Spontaneous
  Country: US (occurrence: US)
  Receive Date: 20190719
  Receipt Date: 20190719
  Transmission Date: 20191004
  Serious: Yes (Life-Threatening, Other)
  Sender: FDA-Public Use
  Company Number: None

PATIENT
  Sex: Female
  Weight: 76.5 kg

DRUGS (13)
  1. CONTRAVE [Suspect]
     Active Substance: BUPROPION HYDROCHLORIDE\NALTREXONE HYDROCHLORIDE
     Indication: WEIGHT DECREASED
     Dosage: 1 TABLET(S)
     Dates: start: 20190717, end: 20190717
  2. LYRICA [Concomitant]
     Active Substance: PREGABALIN
  3. NEXIUM [Concomitant]
     Active Substance: ESOMEPRAZOLE MAGNESIUM
  4. DULOXETINE. [Concomitant]
     Active Substance: DULOXETINE
  5. CALCITONIN NASAL SPRAY [Concomitant]
  6. FUROSEMIDE. [Concomitant]
     Active Substance: FUROSEMIDE
  7. TIZANIDINE. [Concomitant]
     Active Substance: TIZANIDINE
  8. LINZESS [Concomitant]
     Active Substance: LINACLOTIDE
  9. ACETAMINOPHEN. [Concomitant]
     Active Substance: ACETAMINOPHEN
  10. SUMATRIPTAN. [Concomitant]
     Active Substance: SUMATRIPTAN
  11. ACETAMINOPHEN. [Concomitant]
     Active Substance: ACETAMINOPHEN
  12. INTRATHECAL MORPHINE PUMP [Concomitant]
  13. SYNTHROID [Concomitant]
     Active Substance: LEVOTHYROXINE SODIUM

REACTIONS (10)
  - Dyspnoea [None]
  - Diarrhoea [None]
  - Nausea [None]
  - Tremor [None]
  - Myoclonus [None]
  - Discomfort [None]
  - Vomiting [None]
  - Wheezing [None]
  - Cold sweat [None]
  - Hyperhidrosis [None]

NARRATIVE: CASE EVENT DATE: 20190717
